FAERS Safety Report 12539606 (Version 3)
Quarter: 2016Q3

REPORT INFORMATION
  Report Type: Spontaneous
  Country: IT (occurrence: IT)
  Receive Date: 20160708
  Receipt Date: 20160727
  Transmission Date: 20161109
  Serious: Yes (Other)
  Sender: FDA-Public Use
  Company Number: IT-ACCORD-042178

PATIENT
  Age: 63 Year
  Sex: Male
  Weight: 64 kg

DRUGS (4)
  1. CAPECITABINE. [Suspect]
     Active Substance: CAPECITABINE
     Indication: ADENOCARCINOMA GASTRIC
     Route: 048
     Dates: start: 20160302, end: 20160302
  2. OXALIPLATIN. [Suspect]
     Active Substance: OXALIPLATIN
     Indication: ADENOCARCINOMA GASTRIC
     Route: 042
     Dates: start: 20160302, end: 20160603
  3. FLUOROURACIL. [Suspect]
     Active Substance: FLUOROURACIL
     Indication: ADENOCARCINOMA GASTRIC
     Dosage: PATIENT ALSO RECEIVED 5-FU 3200 MG INTRAVENOUS FROM 22-APR-2016 TO 03-JUN-2016
     Route: 040
     Dates: start: 20160422, end: 20160603
  4. LEDERFOLIN [Concomitant]
     Active Substance: LEUCOVORIN CALCIUM
     Indication: ADENOCARCINOMA GASTRIC
     Dates: start: 20160422, end: 20160603

REACTIONS (5)
  - Off label use [Unknown]
  - Supraventricular extrasystoles [Recovering/Resolving]
  - Paraesthesia [Not Recovered/Not Resolved]
  - Neutropenia [Recovering/Resolving]
  - Thrombocytopenia [Recovering/Resolving]

NARRATIVE: CASE EVENT DATE: 20160318
